FAERS Safety Report 11091456 (Version 1)
Quarter: 2015Q2

REPORT INFORMATION
  Report Type: Spontaneous
  Country: US (occurrence: US)
  Receive Date: 20150505
  Receipt Date: 20150505
  Transmission Date: 20150821
  Serious: Yes (Hospitalization, Other)
  Sender: FDA-Public Use
  Company Number: US-GLAXOSMITHKLINE-US2015GSK059737

PATIENT
  Age: 64 Year
  Sex: Male

DRUGS (2)
  1. VOTRIENT [Suspect]
     Active Substance: PAZOPANIB HYDROCHLORIDE
     Indication: RENAL CANCER
     Dosage: UNK
     Dates: start: 20150404
  2. VOTRIENT [Suspect]
     Active Substance: PAZOPANIB HYDROCHLORIDE
     Indication: METASTASIS

REACTIONS (17)
  - Abdominal pain upper [Unknown]
  - Decreased appetite [Unknown]
  - Ear discomfort [Unknown]
  - Apparent death [Unknown]
  - Retching [Unknown]
  - Skin discolouration [Unknown]
  - Emergency care examination [Recovered/Resolved]
  - Blood glucose abnormal [Unknown]
  - Liver function test abnormal [Unknown]
  - Hospitalisation [Recovered/Resolved]
  - Respiratory arrest [Unknown]
  - Diarrhoea [Unknown]
  - Asthenia [Unknown]
  - Hyperhidrosis [Unknown]
  - Oral discomfort [Unknown]
  - Dyspnoea [Unknown]
  - Oral disorder [Unknown]

NARRATIVE: CASE EVENT DATE: 201504
